FAERS Safety Report 7160614 (Version 4)
Quarter: 2013Q4

REPORT INFORMATION
  Report Type: Spontaneous
  Country: US (occurrence: US)
  Receive Date: 20091028
  Receipt Date: 20131202
  Transmission Date: 20140711
  Serious: Yes (Other)
  Sender: FDA-Public Use
  Company Number: US-BAYER-200937064NA

PATIENT
  Age: 25 Year
  Sex: Female

DRUGS (38)
  1. YAZ [Suspect]
     Indication: PRODUCT USED FOR UNKNOWN INDICATION
     Route: 048
     Dates: start: 2007, end: 20090615
  2. YASMIN [Suspect]
     Indication: PRODUCT USED FOR UNKNOWN INDICATION
  3. TOPAMAX [Concomitant]
     Dosage: UNK UNK, QD
     Route: 048
  4. METFORMIN [Concomitant]
     Dosage: 500 MG, QD
     Route: 048
  5. SIMVASTATIN [Concomitant]
     Dosage: 10 MG, QD
     Route: 048
  6. CLONAZEPAM [Concomitant]
     Dosage: 1 MG, TID
     Route: 048
  7. EFFEXOR XR [Concomitant]
     Dosage: 150 MG, UNK
     Route: 048
  8. LOW-OGESTREL [Concomitant]
     Dosage: UNK
     Dates: start: 20090401
  9. LEVONORGESTREL W/ETHINYLESTRADIOL [Concomitant]
  10. LEVONORGESTREL W/ETHINYLESTRADIOL [Concomitant]
     Dosage: UNK
     Dates: start: 20080624
  11. ALLEGRA-D [Concomitant]
  12. DURATUSS [Concomitant]
  13. METHYLPREDNISOLONE [Concomitant]
  14. HYDROCODONE W/APAP [Concomitant]
  15. METHOCARBAMOL [Concomitant]
  16. FLECTOR [Concomitant]
  17. TORADOL [Concomitant]
     Dosage: 30 MG, UNK
     Route: 030
     Dates: start: 20090517
  18. VICODIN [Concomitant]
     Dosage: UNK
     Dates: start: 20090517
  19. TEMAZEPAM [Concomitant]
     Dosage: 30 MG, UNK
  20. COLACE [Concomitant]
     Dosage: 100 MG, BID
     Dates: start: 20090521
  21. PEPCID [Concomitant]
     Dosage: UNK
     Route: 048
     Dates: start: 20090521
  22. PEPCID [Concomitant]
     Dosage: UNK
     Dates: start: 20090612, end: 20090708
  23. LIDOCAINE [Concomitant]
     Dosage: UNK
     Dates: start: 20090524
  24. DONNATAL [Concomitant]
  25. MOTRIN [Concomitant]
     Dosage: 600 MG, TID
     Dates: start: 20090612
  26. KEFLEX [Concomitant]
     Dosage: 500 MG, UNK
  27. MORPHINE [Concomitant]
     Dosage: 5 MG, UNK
     Route: 042
     Dates: start: 20090612
  28. BYSTOLIC [Concomitant]
     Dosage: 10 MG, UNK
     Dates: start: 20090524, end: 20090612
  29. ROBAXIN [Concomitant]
     Dosage: 1500 MG, QID
  30. ZANTAC [Concomitant]
     Dosage: 150 MG, UNK
     Dates: start: 20090521, end: 20090708
  31. LORTAB [Concomitant]
     Dosage: UNK
     Dates: start: 20090517, end: 20090708
  32. ZOFRAN [Concomitant]
     Dosage: UNK
     Route: 042
     Dates: start: 20090517, end: 20090708
  33. DILAUDID [Concomitant]
  34. PERCOCET [Concomitant]
     Indication: PAIN
     Dosage: UNK
     Dates: start: 20090517, end: 20090708
  35. METOCLOPRAMIDE [Concomitant]
     Dosage: 10 MG, UNK
  36. DICYCLOMINE [Concomitant]
     Dosage: 20 MG, UNK
  37. PHENERGAN [Concomitant]
     Indication: PROPHYLAXIS OF NAUSEA AND VOMITING
     Dosage: 25 MG, PRN
     Dates: start: 20090612, end: 20090708
  38. PRILOSEC [Concomitant]
     Dosage: 20 MG, UNK
     Dates: start: 20090708

REACTIONS (4)
  - Cholecystectomy [Unknown]
  - Injury [Unknown]
  - Cholecystitis chronic [None]
  - Cholesterosis [None]
